FAERS Safety Report 9177217 (Version 1)
Quarter: 2013Q1

REPORT INFORMATION
  Report Type: Spontaneous
  Country: GB (occurrence: GB)
  Receive Date: 20130321
  Receipt Date: 20130321
  Transmission Date: 20140127
  Serious: Yes (Other)
  Sender: FDA-Public Use
  Company Number: GB-NOVOPROD-373229

PATIENT
  Age: 63 Year
  Sex: Male
  Weight: 108 kg

DRUGS (6)
  1. VICTOZA [Suspect]
     Indication: DIABETES MELLITUS
     Dosage: 1.2 MG, QD
     Route: 058
     Dates: start: 20100114
  2. CRESTOR [Concomitant]
     Indication: PRODUCT USED FOR UNKNOWN INDICATION
  3. GLUCOPHAGE FORTE [Concomitant]
     Indication: PRODUCT USED FOR UNKNOWN INDICATION
     Dosage: 1 G, QD
  4. HUMULIN BASAL NPH [Concomitant]
     Indication: PRODUCT USED FOR UNKNOWN INDICATION
     Dosage: 82 IU, QD
  5. LYRICA [Concomitant]
     Indication: SCIATICA
     Dosage: 50 MG, TID
  6. TAMSULOSIN                         /01280302/ [Concomitant]
     Indication: PRODUCT USED FOR UNKNOWN INDICATION
     Dosage: 400 UG, QD

REACTIONS (2)
  - Optic ischaemic neuropathy [Unknown]
  - Visual acuity reduced [Not Recovered/Not Resolved]
